FAERS Safety Report 18565948 (Version 1)
Quarter: 2020Q4

REPORT INFORMATION
  Report Type: Spontaneous
  Country: DE (occurrence: DE)
  Receive Date: 20201201
  Receipt Date: 20201201
  Transmission Date: 20210114
  Serious: Yes (Other)
  Sender: FDA-Public Use
  Company Number: DE-ASTRAZENECA-2020SF57474

PATIENT
  Age: 55 Year
  Sex: Male

DRUGS (2)
  1. CRIZOTINIB [Concomitant]
     Active Substance: CRIZOTINIB
     Indication: HEPATIC CANCER
     Dosage: 2 X 250 MG
     Dates: start: 20200923
  2. OSIMERTINIB. [Suspect]
     Active Substance: OSIMERTINIB
     Indication: HEPATIC CANCER
     Dosage: 80.0MG UNKNOWN
     Route: 048
     Dates: start: 20200201

REACTIONS (3)
  - Metastases to bone [Unknown]
  - Malignant neoplasm progression [Unknown]
  - Off label use [Unknown]

NARRATIVE: CASE EVENT DATE: 202002
